FAERS Safety Report 5085818-7 (Version None)
Quarter: 2006Q3

REPORT INFORMATION
  Report Type: 
  Country: None (occurrence: None)
  Receive Date: 20060817
  Receipt Date: 20060808
  Transmission Date: 20061208
  Serious: Yes (Death)
  Sender: FDA-Public Use
  Company Number: 163-20785-06060305

PATIENT
  Age: 24 Year
  Sex: Male

DRUGS (9)
  1. THALOMID [Suspect]
     Indication: LEUKAEMIA PLASMACYTIC
     Dosage: 100-200MG AS TOLERATED, ORAL; 400 MG, DAILY, ORAL
     Route: 048
     Dates: start: 20040201, end: 20040301
  2. THALOMID [Suspect]
     Indication: MULTIPLE MYELOMA
     Dosage: 100-200MG AS TOLERATED, ORAL; 400 MG, DAILY, ORAL
     Route: 048
     Dates: start: 20040201, end: 20040301
  3. THALOMID [Suspect]
     Indication: LEUKAEMIA PLASMACYTIC
     Dosage: 100-200MG AS TOLERATED, ORAL; 400 MG, DAILY, ORAL
     Route: 048
     Dates: start: 20060120
  4. THALOMID [Suspect]
     Indication: MULTIPLE MYELOMA
     Dosage: 100-200MG AS TOLERATED, ORAL; 400 MG, DAILY, ORAL
     Route: 048
     Dates: start: 20060120
  5. CIPRO [Concomitant]
  6. DIFLUCAN [Concomitant]
  7. ZOVIRIX (ACICLOVIR) [Concomitant]
  8. PEPCID [Concomitant]
  9. BACTRIM [Concomitant]

REACTIONS (3)
  - MALIGNANT NEOPLASM PROGRESSION [None]
  - MULTI-ORGAN FAILURE [None]
  - STEM CELL TRANSPLANT [None]
